FAERS Safety Report 15036426 (Version 3)
Quarter: 2018Q3

REPORT INFORMATION
  Report Type: Spontaneous
  Country: US (occurrence: US)
  Receive Date: 20180620
  Receipt Date: 20180808
  Transmission Date: 20181010
  Serious: No
  Sender: FDA-Public Use
  Company Number: US-BAYER-2018-107897

PATIENT
  Age: 66 Year
  Sex: Male
  Weight: 97.05 kg

DRUGS (2)
  1. BAYER ASPIRIN [Suspect]
     Active Substance: ASPIRIN
  2. ZEGERID OTC CAPSULES [Suspect]
     Active Substance: OMEPRAZOLE\SODIUM BICARBONATE
     Indication: GASTROINTESTINAL DISORDER
     Dosage: 1 DF, QD
     Route: 048
     Dates: start: 20170109

REACTIONS (5)
  - Wrong drug administered [Unknown]
  - Anxiety [Unknown]
  - Dizziness [Unknown]
  - Poor quality drug administered [Unknown]
  - Product appearance confusion [Unknown]

NARRATIVE: CASE EVENT DATE: 20170109
